FAERS Safety Report 22097265 (Version 7)
Quarter: 2025Q1

REPORT INFORMATION
  Report Type: Report from Study
  Country: CA (occurrence: CA)
  Receive Date: 20230315
  Receipt Date: 20250317
  Transmission Date: 20250409
  Serious: Yes (Other)
  Sender: TAKEDA
  Company Number: CA-TAKEDA-2023TUS024732

PATIENT
  Age: 77 Year
  Sex: Female
  Weight: 81.6 kg

DRUGS (13)
  1. HUMAN IMMUNOGLOBULIN G [Suspect]
     Active Substance: HUMAN IMMUNOGLOBULIN G
     Indication: Immunodeficiency common variable
     Dosage: 10 GRAM, 1/WEEK
     Dates: start: 20180101
  2. HUMAN IMMUNOGLOBULIN G [Suspect]
     Active Substance: HUMAN IMMUNOGLOBULIN G
     Indication: Bronchiectasis
     Dosage: 10 GRAM, 1/WEEK
  3. HUMAN IMMUNOGLOBULIN G [Suspect]
     Active Substance: HUMAN IMMUNOGLOBULIN G
     Indication: Primary immunodeficiency syndrome
     Dosage: 10 GRAM, 1/WEEK
  4. HUMAN IMMUNOGLOBULIN G [Suspect]
     Active Substance: HUMAN IMMUNOGLOBULIN G
     Indication: Pneumonia bacterial
  5. ALENDRONATE SODIUM [Concomitant]
     Active Substance: ALENDRONATE SODIUM
  6. OMEPRAZOLE [Concomitant]
     Active Substance: OMEPRAZOLE
  7. BUPROPION HYDROCHLORIDE [Concomitant]
     Active Substance: BUPROPION HYDROCHLORIDE
  8. AMLODIPINE [Concomitant]
     Active Substance: AMLODIPINE BESYLATE
  9. ABILIFY [Concomitant]
     Active Substance: ARIPIPRAZOLE
  10. CITALOPRAM [Concomitant]
     Active Substance: CITALOPRAM
  11. VITAMIN D [Concomitant]
     Active Substance: VITAMIN D NOS
  12. GLUCOSAMINE [Concomitant]
     Active Substance: GLUCOSAMINE
  13. VENTOLIN [Concomitant]
     Active Substance: ALBUTEROL SULFATE

REACTIONS (23)
  - Renal impairment [Unknown]
  - Lower respiratory tract infection [Recovered/Resolved]
  - Product use in unapproved indication [Unknown]
  - Sleep disorder [Unknown]
  - Rhinitis [Unknown]
  - Viral infection [Recovered/Resolved]
  - Illness [Unknown]
  - Bone density decreased [Unknown]
  - Osteoporosis [Unknown]
  - Upper respiratory tract infection [Unknown]
  - Productive cough [Unknown]
  - Product dose omission issue [Unknown]
  - Tooth abscess [Unknown]
  - Varicella zoster virus infection [Unknown]
  - Constipation [Unknown]
  - Gastrointestinal viral infection [Unknown]
  - Cough [Unknown]
  - Pyrexia [Recovered/Resolved]
  - Arthralgia [Unknown]
  - Sinusitis [Recovered/Resolved]
  - Nausea [Unknown]
  - Diarrhoea [Unknown]
  - Fatigue [Recovered/Resolved]

NARRATIVE: CASE EVENT DATE: 20240101
